FAERS Safety Report 14941046 (Version 3)
Quarter: 2018Q4

REPORT INFORMATION
  Report Type: Spontaneous
  Country: JP (occurrence: JP)
  Receive Date: 20180525
  Receipt Date: 20181015
  Transmission Date: 20190204
  Serious: Yes (Hospitalization, Other)
  Sender: FDA-Public Use
  Company Number: JP-GLAXOSMITHKLINE-JP2018JPN089588

PATIENT
  Age: 36 Year
  Sex: Female
  Weight: 59 kg

DRUGS (12)
  1. FLOLAN [Suspect]
     Active Substance: EPOPROSTENOL SODIUM
     Indication: PULMONARY ARTERIAL HYPERTENSION
     Dosage: 53NG/KG/MIN
     Route: 050
     Dates: start: 201609, end: 201701
  2. REVATIO [Concomitant]
     Active Substance: SILDENAFIL CITRATE
     Indication: PULMONARY ARTERIAL HYPERTENSION
     Dosage: 20 MG, TID
  3. OLOPATADINE HYDROCHLORIDE OD [Concomitant]
     Dosage: 5 MG, QD
  4. ADCIRCA [Concomitant]
     Active Substance: TADALAFIL
     Dosage: 20 MG, BID
  5. OPSUMIT [Concomitant]
     Active Substance: MACITENTAN
     Dosage: 10 MG, QD
  6. TAKECAB [Concomitant]
     Active Substance: VONOPRAZAN FUMURATE
     Dosage: 10 MG, QD
  7. IRRIBOW [Concomitant]
     Active Substance: RAMOSETRON HYDROCHLORIDE
     Dosage: 2.5 ?G, QD
  8. FUROSEMIDE. [Concomitant]
     Active Substance: FUROSEMIDE
     Dosage: 40 MG, QD
  9. FERROMIA (JAPAN) [Concomitant]
     Dosage: 100 MG, QD
  10. FLOLAN [Suspect]
     Active Substance: EPOPROSTENOL SODIUM
     Dosage: UNK
     Route: 050
     Dates: start: 201701, end: 20170218
  11. TREPROST [Concomitant]
     Active Substance: TREPROSTINIL
     Indication: PULMONARY ARTERIAL HYPERTENSION
     Dosage: UNK
     Dates: start: 201602
  12. MUCOSTA [Concomitant]
     Active Substance: REBAMIPIDE
     Dosage: 100 MG, QD

REACTIONS (16)
  - Goitre [Recovering/Resolving]
  - Adrenal insufficiency [Recovering/Resolving]
  - Lymphadenopathy [Unknown]
  - Thyroiditis [Recovering/Resolving]
  - Rathke^s cleft cyst [Recovering/Resolving]
  - Hyponatraemia [Recovering/Resolving]
  - Hypothyroidism [Recovering/Resolving]
  - Hypopituitarism [Recovering/Resolving]
  - Silent thyroiditis [Recovering/Resolving]
  - Pyrexia [Recovering/Resolving]
  - Hyperthyroidism [Recovering/Resolving]
  - Decreased appetite [Recovering/Resolving]
  - Oedema peripheral [Recovering/Resolving]
  - Eosinophil count increased [Recovering/Resolving]
  - Arthralgia [Unknown]
  - Blood pressure decreased [Recovering/Resolving]

NARRATIVE: CASE EVENT DATE: 201612
